FAERS Safety Report 10724806 (Version 2)
Quarter: 2015Q1

REPORT INFORMATION
  Report Type: Report from Study
  Country: FR (occurrence: FR)
  Receive Date: 20150120
  Receipt Date: 20150122
  Transmission Date: 20150721
  Serious: Yes (Hospitalization)
  Sender: FDA-Public Use
  Company Number: FR-JNJFOC-20150107915

PATIENT
  Age: 82 Year
  Sex: Male
  Weight: 85 kg

DRUGS (13)
  1. INEXIUM [Concomitant]
     Active Substance: ESOMEPRAZOLE
     Route: 048
  2. CORDARONE [Interacting]
     Active Substance: AMIODARONE HYDROCHLORIDE
     Indication: ARRHYTHMIA
     Dosage: 200MG. 0.5/DAY
     Route: 048
     Dates: start: 20141115
  3. CORDARONE [Interacting]
     Active Substance: AMIODARONE HYDROCHLORIDE
     Indication: ARRHYTHMIA
     Dosage: 1 TABLET AT MIDDAY
     Route: 048
     Dates: start: 20141106, end: 20141130
  4. DITROPAN [Concomitant]
     Active Substance: OXYBUTYNIN CHLORIDE
     Indication: URINARY INCONTINENCE
     Route: 048
     Dates: start: 20141117
  5. RAMIPRIL. [Concomitant]
     Active Substance: RAMIPRIL
     Indication: HYPERTENSION
     Dosage: 1 TABLET AT MIDDAY
     Route: 048
     Dates: start: 20141106
  6. PREVISCAN (FLUINDIONE) [Concomitant]
     Active Substance: FLUINDIONE
     Indication: HYPERTENSION
     Route: 048
     Dates: start: 20120127
  7. SIMEPREVIR [Suspect]
     Active Substance: SIMEPREVIR
     Indication: VIRAL INFECTION
     Route: 048
     Dates: start: 20140820, end: 20141112
  8. DITROPAN [Concomitant]
     Active Substance: OXYBUTYNIN CHLORIDE
     Indication: URINARY INCONTINENCE
     Dosage: 1 TABLET MORNING AND EVENING
     Route: 048
     Dates: start: 20141106, end: 20141130
  9. SOFOSBUVIR [Concomitant]
     Active Substance: SOFOSBUVIR
     Indication: VIRAL INFECTION
     Route: 065
     Dates: start: 20140820, end: 20141112
  10. INEXIUM [Concomitant]
     Active Substance: ESOMEPRAZOLE
     Dosage: 1 TABLET IN THE EVENING
     Route: 048
     Dates: start: 20141106, end: 20141130
  11. PREVISCAN (FLUINDIONE) [Concomitant]
     Active Substance: FLUINDIONE
     Indication: HYPERTENSION
     Dosage: HALF A TABLET IN THE EVENING, TO BE TAKEN EVERY OTHER DAY
     Route: 048
     Dates: start: 20141106, end: 20141130
  12. DOLIPRANE [Concomitant]
     Active Substance: ACETAMINOPHEN
     Indication: PAIN
     Dosage: 1 TO 6 CAPSULES PER DAY IF NEEDED, IF IN PAIN
     Route: 048
     Dates: start: 20141106, end: 20141130
  13. PREVISCAN (FLUINDIONE) [Concomitant]
     Active Substance: FLUINDIONE
     Indication: HYPERTENSION
     Dosage: 0.5 TABLET IN THE MORNING
     Route: 048
     Dates: start: 20141117

REACTIONS (5)
  - Malaise [Recovering/Resolving]
  - Loss of consciousness [Recovered/Resolved]
  - Drug interaction [Recovering/Resolving]
  - Orthostatic hypotension [Recovering/Resolving]
  - Headache [Recovering/Resolving]

NARRATIVE: CASE EVENT DATE: 20141031
